FAERS Safety Report 4786087-5 (Version None)
Quarter: 2005Q4

REPORT INFORMATION
  Report Type: 
  Country: None (occurrence: None)
  Receive Date: 20051003
  Receipt Date: 20050922
  Transmission Date: 20060501
  Serious: Yes (Death)
  Sender: FDA-Public Use
  Company Number: IL-NOVOPROD-247205

PATIENT
  Age: 34 Year
  Sex: Male

DRUGS (1)
  1. NOVOSEVEN [Suspect]
     Indication: TRAUMATIC HAEMORRHAGE
     Dosage: 7.2 MG, UNK
     Dates: start: 20050922, end: 20050922

REACTIONS (1)
  - CONCOMITANT DISEASE PROGRESSION [None]
